FAERS Safety Report 9193156 (Version 3)
Quarter: 2013Q2

REPORT INFORMATION
  Report Type: Spontaneous
  Country: US (occurrence: US)
  Receive Date: 20130327
  Receipt Date: 20130521
  Transmission Date: 20140414
  Serious: No
  Sender: FDA-Public Use
  Company Number: US-VERTEX PHARMACEUTICALS INC.-2013-004090

PATIENT
  Age: 53 Year
  Sex: Female
  Weight: 59 kg

DRUGS (6)
  1. INCIVEK [Suspect]
     Indication: HEPATITIS C
     Dosage: 375 MG, TID
     Route: 048
     Dates: start: 20130308, end: 20130325
  2. INCIVEK [Suspect]
     Dosage: 750 MG, TID
     Route: 048
     Dates: start: 20130325
  3. RIBAVIRIN [Suspect]
     Indication: HEPATITIS C
     Dosage: 400 MG, BID
     Route: 048
     Dates: start: 20130226
  4. PEGASYS [Suspect]
     Indication: HEPATITIS C
     Dosage: 90 ?G, QW
     Route: 058
     Dates: start: 20130226
  5. VITAMIN B12 [Concomitant]
  6. PROZAC [Concomitant]

REACTIONS (3)
  - Amnesia [Not Recovered/Not Resolved]
  - Medication error [Recovered/Resolved]
  - Diarrhoea [Not Recovered/Not Resolved]
